FAERS Safety Report 13532031 (Version 5)
Quarter: 2018Q2

REPORT INFORMATION
  Report Type: Spontaneous
  Country: US (occurrence: US)
  Receive Date: 20170510
  Receipt Date: 20180626
  Transmission Date: 20180711
  Serious: Yes (Hospitalization)
  Sender: FDA-Public Use
  Company Number: US-VERTEX PHARMACEUTICALS-2017-002484

PATIENT
  Age: 11 Year
  Sex: Female
  Weight: 39 kg

DRUGS (14)
  1. AQUADEKS [Concomitant]
     Active Substance: MINERALS\VITAMINS
  2. FLONASE                            /00908302/ [Concomitant]
     Active Substance: MOMETASONE FUROATE
  3. OMEPRAZOLE. [Concomitant]
     Active Substance: OMEPRAZOLE
  4. ORKAMBI [Suspect]
     Active Substance: IVACAFTOR\LUMACAFTOR
     Indication: CYSTIC FIBROSIS
     Dosage: 2 DF (100/125 MG EACH), BID
     Route: 048
     Dates: start: 20170114
  5. ALBUTEROL                          /00139501/ [Concomitant]
     Active Substance: ALBUTEROL
  6. INSULIN [Concomitant]
     Active Substance: INSULIN NOS
  7. VITAMIN D3 [Concomitant]
     Active Substance: CHOLECALCIFEROL
  8. LISINOPRIL. [Concomitant]
     Active Substance: LISINOPRIL
  9. PULMOZYME [Suspect]
     Active Substance: DORNASE ALFA
     Indication: CYSTIC FIBROSIS
     Dosage: 2.5 MG, QD
     Route: 055
     Dates: start: 20140108
  10. SODIUM CHLORIDE. [Concomitant]
     Active Substance: SODIUM CHLORIDE
  11. CREON [Concomitant]
     Active Substance: PANCRELIPASE AMYLASE\PANCRELIPASE LIPASE\PANCRELIPASE PROTEASE
  12. CIPROFLOXACIN. [Concomitant]
     Active Substance: CIPROFLOXACIN
  13. AMLODIPINE [Concomitant]
     Active Substance: AMLODIPINE BESYLATE
  14. GABAPENTIN. [Concomitant]
     Active Substance: GABAPENTIN

REACTIONS (1)
  - Infective pulmonary exacerbation of cystic fibrosis [Recovered/Resolved]

NARRATIVE: CASE EVENT DATE: 20170602
